FAERS Safety Report 8740550 (Version 2)
Quarter: 2013Q4

REPORT INFORMATION
  Report Type: Spontaneous
  Country: US (occurrence: US)
  Receive Date: 20120823
  Receipt Date: 20131003
  Transmission Date: 20140711
  Serious: No
  Sender: FDA-Public Use
  Company Number: US-009507513-1208USA007586

PATIENT
  Sex: 0

DRUGS (2)
  1. MAXALT [Suspect]
     Indication: MIGRAINE
     Dosage: UNK
     Route: 048
  2. IMITREX (SUMATRIPTAN) [Concomitant]
     Indication: MIGRAINE

REACTIONS (1)
  - Therapeutic response decreased [Unknown]
